FAERS Safety Report 6218070-7 (Version None)
Quarter: 2009Q2

REPORT INFORMATION
  Report Type: 
  Country: None (occurrence: None)
  Receive Date: 20090608
  Receipt Date: 20090529
  Transmission Date: 20091009
  Serious: Yes (Hospitalization)
  Sender: FDA-Public Use
  Company Number: JP-ASTRAZENECA-2009AP02869

PATIENT
  Age: 43 Year
  Sex: Female

DRUGS (10)
  1. OMEPRAL TABLETS 20 [Suspect]
     Indication: GASTRIC ULCER
     Route: 048
     Dates: start: 20090311
  2. MEROPEN [Suspect]
     Dosage: DOSE UNKNOWN
     Route: 041
     Dates: start: 20090410, end: 20090411
  3. PROCYLIN [Suspect]
     Indication: THROMBOSIS PROPHYLAXIS
     Route: 048
     Dates: start: 20090311
  4. RIVOTRIL [Suspect]
     Indication: EPILEPSY
     Route: 048
     Dates: start: 20090319
  5. MEILAX [Suspect]
     Indication: ANTIDEPRESSANT THERAPY
     Route: 048
     Dates: start: 20090402
  6. BAKTAR [Suspect]
     Indication: INFECTION PROPHYLAXIS
     Route: 048
     Dates: start: 20090411
  7. OMEGACIN [Suspect]
     Dosage: DOSE UNKNOWN
     Route: 041
     Dates: start: 20090317, end: 20090323
  8. FIRSTCIN [Suspect]
     Dosage: DOSE UNKNOWN
     Route: 041
     Dates: start: 20090406, end: 20090408
  9. VANCOMYCIN HCL [Suspect]
     Dosage: DOSE UNKNOWN
     Route: 041
     Dates: start: 20090409, end: 20090411
  10. TARGOCID [Suspect]
     Dosage: DOSE UNKNOWN
     Route: 041
     Dates: start: 20090411, end: 20090411

REACTIONS (1)
  - GENERALISED ERYTHEMA [None]
